FAERS Safety Report 9776469 (Version 1)
Quarter: 2013Q4

REPORT INFORMATION
  Report Type: Spontaneous
  Country: US (occurrence: US)
  Receive Date: 20131220
  Receipt Date: 20131220
  Transmission Date: 20140711
  Serious: No
  Sender: FDA-Public Use
  Company Number: US-BIOGENIDEC-2013BI121624

PATIENT
  Age: 69 Year
  Sex: Female

DRUGS (8)
  1. TECFIDERA [Suspect]
     Indication: MULTIPLE SCLEROSIS
     Route: 048
     Dates: start: 20131209, end: 20131216
  2. MECLIZINE [Concomitant]
  3. METOPROLOL [Concomitant]
  4. DIAZEPAM [Concomitant]
  5. VIT D [Concomitant]
  6. AMANTADINE [Concomitant]
  7. NEXIUM [Concomitant]
  8. FISH OIL [Concomitant]

REACTIONS (4)
  - Prescribed underdose [Unknown]
  - Paraesthesia [Unknown]
  - Eye irritation [Unknown]
  - Flushing [Unknown]
